FAERS Safety Report 8220704-2 (Version None)
Quarter: 2012Q1

REPORT INFORMATION
  Report Type: 
  Country: None (occurrence: None)
  Receive Date: 20120320
  Receipt Date: 20120308
  Transmission Date: 20120608
  Serious: Yes (Other)
  Sender: FDA-Public Use
  Company Number: US-SANOFI-AVENTIS-2012SA014367

PATIENT
  Age: 82 Year
  Sex: Female

DRUGS (2)
  1. CLARITIN [Concomitant]
  2. FEXOFENADINE HYDROCHLORIDE [Suspect]
     Dates: start: 20110101

REACTIONS (3)
  - PNEUMONIA [None]
  - SOMNOLENCE [None]
  - DRUG INEFFECTIVE [None]
